FAERS Safety Report 4555399-2 (Version None)
Quarter: 2005Q1

REPORT INFORMATION
  Report Type: 
  Country: None (occurrence: None)
  Receive Date: 20050118
  Receipt Date: 20050118
  Transmission Date: 20050727
  Serious: Yes (Death)
  Sender: FDA-Public Use
  Company Number: None

PATIENT
  Sex: Female

DRUGS (9)
  1. VINCRISTINE [Suspect]
     Indication: ACUTE LYMPHOCYTIC LEUKAEMIA
     Dosage: 1.4 MG WEEKLY AT IV
     Route: 042
     Dates: start: 20031104, end: 20031125
  2. VINCRISTINE [Suspect]
     Indication: DISEASE RECURRENCE
     Dosage: 1.4 MG WEEKLY AT IV
     Route: 042
     Dates: start: 20031104, end: 20031125
  3. DOXORUBICIN HCL [Suspect]
     Dosage: 55 MG X 1 IV
     Route: 042
     Dates: start: 20031104, end: 20031104
  4. IT ARA-C [Concomitant]
  5. PEG [Concomitant]
  6. PREDNISONE [Concomitant]
  7. METHOTREXATE [Concomitant]
  8. .. [Concomitant]
  9. L-ASP [Concomitant]

REACTIONS (5)
  - ACUTE LYMPHOCYTIC LEUKAEMIA [None]
  - CARDIO-RESPIRATORY ARREST [None]
  - DISEASE RECURRENCE [None]
  - NEUTROPENIA [None]
  - SEPTIC SHOCK [None]
